FAERS Safety Report 10227139 (Version 1)
Quarter: 2014Q2

REPORT INFORMATION
  Report Type: Spontaneous
  Country: JP (occurrence: None)
  Receive Date: 20140606
  Receipt Date: 20140606
  Transmission Date: 20141212
  Serious: Yes (Death, Hospitalization)
  Sender: FDA-Public Use
  Company Number: JP-2014-1753

PATIENT
  Age: 53 Year
  Sex: Female

DRUGS (2)
  1. NAVELBINE [Suspect]
     Indication: NON-SMALL CELL LUNG CANCER
  2. CISPLATIN (CISPLATIN) [Suspect]
     Indication: NON-SMALL CELL LUNG CANCER

REACTIONS (1)
  - Osteosarcoma recurrent [None]
